FAERS Safety Report 21927608 (Version 1)
Quarter: 2023Q1

REPORT INFORMATION
  Report Type: Spontaneous
  Country: DK (occurrence: DK)
  Receive Date: 20230130
  Receipt Date: 20230130
  Transmission Date: 20230418
  Serious: Yes (Hospitalization)
  Sender: FDA-Public Use
  Company Number: None

PATIENT
  Age: 53 Year
  Sex: Male
  Weight: 87 kg

DRUGS (7)
  1. CLINDAMYCIN HYDROCHLORIDE [Suspect]
     Active Substance: CLINDAMYCIN HYDROCHLORIDE
     Indication: Infection
     Dosage: 1800 MG, 1X/DAY
     Route: 048
     Dates: start: 20230105, end: 20230111
  2. ACETAMINOPHEN [Suspect]
     Active Substance: ACETAMINOPHEN
     Indication: Pain
     Dosage: 3000 MG, 1X/DAY
     Route: 048
     Dates: start: 20230106, end: 20230111
  3. PANTOPRAZOLE SODIUM [Suspect]
     Active Substance: PANTOPRAZOLE SODIUM
     Indication: Prophylaxis against gastrointestinal ulcer
     Dosage: 40 MG, 1X/DAY
     Route: 048
     Dates: start: 20230107, end: 20230110
  4. CLOXACILLIN [Suspect]
     Active Substance: CLOXACILLIN
     Indication: Infection
     Dosage: 3 G, 1X/DAY
     Route: 042
     Dates: start: 20230104, end: 20230106
  5. PENICILLIN G [Suspect]
     Active Substance: PENICILLIN G
     Indication: Infection
     Dosage: 7.2 G, 1X/DAY
     Route: 048
     Dates: start: 20230104, end: 20230111
  6. MORPHINE HYDROCHLORIDE [Suspect]
     Active Substance: MORPHINE HYDROCHLORIDE
     Indication: Pain
     Dosage: 10 MG, AS NEEDED
     Route: 048
     Dates: start: 20230105
  7. IBUPROFEN [Suspect]
     Active Substance: IBUPROFEN
     Indication: Pain
     Dosage: 1800 MG, 1X/DAY
     Route: 048
     Dates: start: 20230106, end: 20230110

REACTIONS (1)
  - Hepatic enzyme increased [Recovering/Resolving]

NARRATIVE: CASE EVENT DATE: 20230110
